FAERS Safety Report 7200695-3 (Version None)
Quarter: 2010Q4

REPORT INFORMATION
  Report Type: 
  Country: None (occurrence: None)
  Receive Date: 20101215
  Receipt Date: 20101201
  Transmission Date: 20110411
  Serious: Yes (Other)
  Sender: FDA-Public Use
  Company Number: 023024

PATIENT
  Sex: Male

DRUGS (1)
  1. CIMZIA [Suspect]
     Indication: OFF LABEL USE
     Dosage: 400 MG 1X/14 DAYS SUBCUTANEOUS
     Route: 058
     Dates: start: 20090713

REACTIONS (1)
  - METASTATIC MALIGNANT MELANOMA [None]
